FAERS Safety Report 8221723-2 (Version None)
Quarter: 2012Q1

REPORT INFORMATION
  Report Type: 
  Country: None (occurrence: None)
  Receive Date: 20120320
  Receipt Date: 20120312
  Transmission Date: 20120608
  Serious: Yes (Hospitalization, Disabling)
  Sender: FDA-Public Use
  Company Number: US-BAYER-2011-063094

PATIENT
  Age: 30 Year
  Sex: Female
  Weight: 81 kg

DRUGS (15)
  1. DILAUDID [Concomitant]
     Indication: PAIN
     Dosage: UNK UNK, PRN
  2. VICODIN [Concomitant]
     Dosage: UNK UNK, PRN
  3. DROSPIRENONE AND ETHINYL ESTRADIOL [Suspect]
     Indication: PREMENSTRUAL SYNDROME
     Dosage: UNK
     Route: 048
     Dates: start: 20060201, end: 20090701
  4. PROZAC [Concomitant]
     Indication: DEPRESSION
     Dosage: 2 MG, QD
     Route: 048
     Dates: start: 20090301, end: 20090701
  5. MORPHINE [Concomitant]
     Indication: PAIN
     Dosage: UNK UNK, PRN
  6. PERCOCET [Concomitant]
     Dosage: UNK UNK, PRN
  7. YAZ [Suspect]
     Indication: PREMENSTRUAL SYNDROME
     Dosage: UNK
     Dates: start: 20060201, end: 20090701
  8. PHENERGAN [Concomitant]
     Dosage: 25 MG, UNK
  9. MIRALAX [Concomitant]
     Dosage: 17 MG, BID
  10. ZOFRAN [Concomitant]
  11. AMBIEN [Concomitant]
     Indication: INSOMNIA
     Dosage: UNK UNK, PRN
  12. NAPROXEN (ALEVE) [Concomitant]
  13. BENADRYL [Concomitant]
     Indication: INSOMNIA
     Dosage: UNK UNK, PRN
  14. FAMOTIDINE [Concomitant]
  15. NAPROXEN [Concomitant]

REACTIONS (5)
  - THROMBOPHLEBITIS SUPERFICIAL [None]
  - PULMONARY EMBOLISM [None]
  - PAIN [None]
  - DEPRESSION [None]
  - INJURY [None]
